FAERS Safety Report 17179400 (Version 1)
Quarter: 2019Q4

REPORT INFORMATION
  Report Type: Spontaneous
  Country: AU (occurrence: AU)
  Receive Date: 20191219
  Receipt Date: 20191219
  Transmission Date: 20200122
  Serious: Yes (Other)
  Sender: FDA-Public Use
  Company Number: AU-ELI_LILLY_AND_COMPANY-AU201912006550

PATIENT
  Age: 13 Year
  Sex: Female

DRUGS (2)
  1. HUMATROPE [Suspect]
     Active Substance: SOMATROPIN
     Indication: TURNER^S SYNDROME
     Dosage: UNK UNK, UNKNOWN
     Route: 058
     Dates: start: 20120312, end: 20170722
  2. ESTRADERM [Suspect]
     Active Substance: ESTRADIOL
     Indication: DELAYED PUBERTY
     Dosage: 37 UG, UNKNOWN
     Route: 062
     Dates: start: 20151118

REACTIONS (1)
  - Avulsion fracture [Recovering/Resolving]

NARRATIVE: CASE EVENT DATE: 20170720
